FAERS Safety Report 21640554 (Version 1)
Quarter: 2022Q4

REPORT INFORMATION
  Report Type: Spontaneous
  Country: US (occurrence: US)
  Receive Date: 20221124
  Receipt Date: 20221124
  Transmission Date: 20230113
  Serious: No
  Sender: FDA-Public Use
  Company Number: US-SA-SAC20221123000597

PATIENT
  Age: 53 Year
  Sex: Female
  Weight: 83 kg

DRUGS (6)
  1. DUPIXENT [Suspect]
     Active Substance: DUPILUMAB
     Indication: Dermatitis atopic
     Dosage: 300 MG, QOW
     Route: 058
  2. OTEZLA [Suspect]
     Active Substance: APREMILAST
     Dosage: UNK
     Dates: start: 2017
  3. TACROLIMUS [Suspect]
     Active Substance: TACROLIMUS
     Dosage: UNK
     Dates: start: 2017
  4. METHOTREXATE [Concomitant]
     Active Substance: METHOTREXATE
  5. COLLACEPT [Concomitant]
  6. MYCOPHENOLATE MOFETIL [Concomitant]
     Active Substance: MYCOPHENOLATE MOFETIL

REACTIONS (2)
  - Nausea [Unknown]
  - Treatment failure [Unknown]

NARRATIVE: CASE EVENT DATE: 20170101
